FAERS Safety Report 24729995 (Version 1)
Quarter: 2024Q4

REPORT INFORMATION
  Report Type: Spontaneous
  Country: FR (occurrence: FR)
  Receive Date: 20241213
  Receipt Date: 20241213
  Transmission Date: 20250115
  Serious: Yes (Hospitalization, Other)
  Sender: NOVARTIS
  Company Number: FR-SZ09-PHHY2013FR043849

PATIENT
  Age: 37 Year
  Sex: Female

DRUGS (2)
  1. LAPATINIB [Suspect]
     Active Substance: LAPATINIB
     Indication: Metastases to bone
     Dosage: CYCLICAL THERAPY OF (1250 MG, DAILY)
     Route: 048
  2. CAPECITABINE [Suspect]
     Active Substance: CAPECITABINE
     Indication: Metastases to bone
     Dosage: 2000 MG/M2 IN TWO DIVIDED DOSES ON D1-14 OF A 21D CYCLE
     Route: 048

REACTIONS (5)
  - Abdominal pain [Unknown]
  - Diarrhoea [Unknown]
  - Palmar-plantar erythrodysaesthesia syndrome [Unknown]
  - Asthenia [Unknown]
  - Maternal exposure during pregnancy [Unknown]
